FAERS Safety Report 21608755 (Version 1)
Quarter: 2022Q4

REPORT INFORMATION
  Report Type: Spontaneous
  Country: US (occurrence: None)
  Receive Date: 20221117
  Receipt Date: 20221117
  Transmission Date: 20230113
  Serious: No
  Sender: FDA-Public Use
  Company Number: US-Hikma Pharmaceuticals USA Inc.-US-H14001-22-01695

PATIENT
  Age: 75 Year
  Sex: Male

DRUGS (3)
  1. ZALEPLON [Suspect]
     Active Substance: ZALEPLON
     Indication: Product used for unknown indication
     Dosage: UNKNOWN
     Route: 065
  2. ALPRAZOLAM [Suspect]
     Active Substance: ALPRAZOLAM
     Indication: Product used for unknown indication
     Dosage: UNKNOWN
     Route: 065
  3. XANAX [Suspect]
     Active Substance: ALPRAZOLAM
     Indication: Product used for unknown indication
     Route: 065

REACTIONS (5)
  - Nervous system disorder [Unknown]
  - Poor quality sleep [Unknown]
  - Fatigue [Unknown]
  - Illness [Unknown]
  - Drug ineffective [Unknown]
